FAERS Safety Report 7326145-4 (Version None)
Quarter: 2011Q1

REPORT INFORMATION
  Report Type: 
  Country: None (occurrence: None)
  Receive Date: 20110302
  Receipt Date: 20110221
  Transmission Date: 20110831
  Serious: Yes (Hospitalization, Other)
  Sender: FDA-Public Use
  Company Number: US-ROCHE-761851

PATIENT
  Sex: Male

DRUGS (3)
  1. PEGASYS [Suspect]
     Indication: HEPATITIS
     Dosage: FREQUENCY: WEEKLY
     Route: 065
     Dates: start: 20100910
  2. ALCOHOL WIPE [Suspect]
     Dosage: FREQUENCY: WEEKLY
     Route: 061
     Dates: start: 20100910
  3. RIBAVIRIN [Suspect]
     Indication: HEPATITIS
     Route: 065
     Dates: start: 20100910

REACTIONS (4)
  - CARDITIS [None]
  - DYSPNOEA [None]
  - EMOTIONAL DISTRESS [None]
  - PNEUMONIA [None]
